FAERS Safety Report 6734526-2 (Version None)
Quarter: 2010Q2

REPORT INFORMATION
  Report Type: 
  Country: None (occurrence: None)
  Receive Date: 20100520
  Receipt Date: 20100507
  Transmission Date: 20101027
  Serious: Yes (Other)
  Sender: FDA-Public Use
  Company Number: US-ELI_LILLY_AND_COMPANY-US201005002896

PATIENT
  Sex: Female

DRUGS (20)
  1. FORTEO [Suspect]
     Indication: OSTEOPOROSIS
     Dosage: 20 UG, DAILY (1/D)
     Dates: start: 20100414
  2. ASPIRIN [Concomitant]
     Dosage: 81 MG, DAILY (1/D)
  3. PREVACID [Concomitant]
     Dosage: 30 MG, AS NEEDED
  4. ALLEGRA [Concomitant]
     Dosage: 180 MG, DAILY (1/D)
  5. TOPROL-XL [Concomitant]
     Dosage: 25 MG, DAILY (1/D)
  6. FUROSEMIDE [Concomitant]
     Dosage: 20 MG, DAILY (1/D)
  7. KLOR-CON [Concomitant]
     Dosage: 20 MG, DAILY (1/D)
  8. MIRAPEX [Concomitant]
     Dosage: 25 MG, EACH EVENING
  9. CRESTOR [Concomitant]
     Dosage: 10 MG, DAILY (1/D)
  10. GLYCOLAX [Concomitant]
     Dosage: 0.5 %, EACH EVENING
  11. RESTASIS [Concomitant]
     Dosage: 1 GTT, 2/D
     Route: 047
  12. NITROGLYCERIN [Concomitant]
     Dosage: 0.4 MG, DAILY (1/D)
  13. LISINOPRIL [Concomitant]
     Dosage: 10 MG, EACH EVENING
  14. ASTELIN [Concomitant]
     Dosage: UNK, DAILY (1/D)
  15. NASONEX [Concomitant]
     Dosage: UNK, DAILY (1/D)
     Route: 045
  16. FORADIL [Concomitant]
     Dosage: UNK, 2/D
  17. COMBIVENT [Concomitant]
     Dosage: UNK, 4/D
  18. VITAMIN D [Concomitant]
     Dosage: 1000 U, DAILY (1/D)
  19. CALCIUM [Concomitant]
     Dosage: 1500 MG, DAILY (1/D)
  20. PLAVIX [Concomitant]
     Dosage: 75 MG, DAILY (1/D)

REACTIONS (4)
  - ABDOMINAL DISCOMFORT [None]
  - ARRHYTHMIA [None]
  - CORONARY ARTERY OCCLUSION [None]
  - HYPERTENSION [None]
